FAERS Safety Report 8212243-X (Version None)
Quarter: 2012Q1

REPORT INFORMATION
  Report Type: 
  Country: None (occurrence: None)
  Receive Date: 20120315
  Receipt Date: 20120306
  Transmission Date: 20120608
  Serious: Yes (Other)
  Sender: FDA-Public Use
  Company Number: US-JNJFOC-20120303137

PATIENT
  Sex: Female

DRUGS (2)
  1. ANTIVIRALS [Concomitant]
     Indication: HEPATITIS C
     Route: 065
  2. CONCERTA [Suspect]
     Indication: PRODUCT USED FOR UNKNOWN INDICATION
     Route: 065

REACTIONS (2)
  - TREATMENT NONCOMPLIANCE [None]
  - HEPATITIS C [None]
